FAERS Safety Report 9487556 (Version 2)
Quarter: 2013Q3

REPORT INFORMATION
  Report Type: Spontaneous
  Country: US (occurrence: US)
  Receive Date: 20130725
  Receipt Date: 20130725
  Transmission Date: 20140515
  Serious: Yes (Hospitalization)
  Sender: FDA-Public Use
  Company Number: US-GLAXOSMITHKLINE-A0814903A

PATIENT
  Age: 54 Year
  Sex: Female
  Weight: 98.2 kg

DRUGS (2)
  1. AVANDIA [Suspect]
     Indication: DIABETES MELLITUS
     Dosage: 4MG PER DAY
     Route: 048
     Dates: start: 20040204, end: 2007
  2. NITROGLYCERIN [Concomitant]

REACTIONS (2)
  - Cardiac failure congestive [Not Recovered/Not Resolved]
  - Weight increased [Unknown]
